FAERS Safety Report 15020808 (Version 1)
Quarter: 2018Q2

REPORT INFORMATION
  Report Type: Spontaneous
  Country: US (occurrence: US)
  Receive Date: 20180618
  Receipt Date: 20180618
  Transmission Date: 20180711
  Serious: Yes (Death)
  Sender: FDA-Public Use
  Company Number: US-PFIZER INC-2017054981

PATIENT
  Age: 80 Year
  Sex: Female

DRUGS (2)
  1. REVATIO [Suspect]
     Active Substance: SILDENAFIL CITRATE
     Dosage: 80 MG, 3X/DAY, (20MG TABLETS, FOUR TABLETS THREE TIMES A DAY BY MOUTH)
     Route: 048
     Dates: start: 201507
  2. REVATIO [Suspect]
     Active Substance: SILDENAFIL CITRATE
     Indication: PULMONARY HYPERTENSION
     Dosage: 180 MG, DAILY

REACTIONS (2)
  - Cardiac arrest [Fatal]
  - Prescribed overdose [Unknown]

NARRATIVE: CASE EVENT DATE: 20180612
